FAERS Safety Report 10888796 (Version 1)
Quarter: 2015Q1

REPORT INFORMATION
  Report Type: Report from Study
  Country: AR (occurrence: AR)
  Receive Date: 20150305
  Receipt Date: 20150305
  Transmission Date: 20150721
  Serious: Yes (Hospitalization)
  Sender: FDA-Public Use
  Company Number: AR-ABBVIE-15K-007-1354801-00

PATIENT
  Age: 77 Year
  Sex: Male

DRUGS (3)
  1. SULFADIAZINE. [Suspect]
     Active Substance: SULFADIAZINE
     Indication: HYPERSENSITIVITY
     Route: 048
     Dates: start: 201502
  2. HUMIRA [Suspect]
     Active Substance: ADALIMUMAB
     Indication: PSORIASIS
     Route: 058
     Dates: start: 20130925
  3. CLINDAMYCIN [Suspect]
     Active Substance: CLINDAMYCIN\CLINDAMYCIN PHOSPHATE
     Indication: HYPERSENSITIVITY
     Route: 048
     Dates: start: 201502

REACTIONS (5)
  - Urticaria [Recovering/Resolving]
  - Scratch [Recovering/Resolving]
  - Arthropod bite [Recovering/Resolving]
  - Skin injury [Recovering/Resolving]
  - Swelling [Recovering/Resolving]

NARRATIVE: CASE EVENT DATE: 201502
